FAERS Safety Report 23977703 (Version 2)
Quarter: 2025Q2

REPORT INFORMATION
  Report Type: Spontaneous
  Country: US (occurrence: US)
  Receive Date: 20240614
  Receipt Date: 20250427
  Transmission Date: 20250717
  Serious: Yes (Death, Hospitalization, Other)
  Sender: SANOFI AVENTIS
  Company Number: US-SA-SAC20240611000543

PATIENT
  Age: 74 Year
  Sex: Female
  Weight: 69.8 kg

DRUGS (30)
  1. REZUROCK [Suspect]
     Active Substance: BELUMOSUDIL
     Indication: Chronic graft versus host disease
     Dosage: 200 MG, BID
     Route: 048
     Dates: start: 20211104, end: 20250416
  2. JAKAFI [Concomitant]
     Active Substance: RUXOLITINIB
  3. CIPROFLOXACIN [Concomitant]
     Active Substance: CIPROFLOXACIN
  4. POSACONAZOLE [Concomitant]
     Active Substance: POSACONAZOLE
  5. PROTONIX [Concomitant]
     Active Substance: PANTOPRAZOLE SODIUM
  6. ACYCLOVIR [Concomitant]
     Active Substance: ACYCLOVIR
  7. LIPITOR [Concomitant]
     Active Substance: ATORVASTATIN CALCIUM
  8. PREDNISONE [Concomitant]
     Active Substance: PREDNISONE
  9. ELIQUIS [Concomitant]
     Active Substance: APIXABAN
  10. ZYRTEC [Concomitant]
     Active Substance: CETIRIZINE HYDROCHLORIDE
  11. VITAMINS [Concomitant]
     Active Substance: VITAMINS
  12. HYDROCORTISONE [Concomitant]
     Active Substance: HYDROCORTISONE
  13. EVUSHELD [Concomitant]
     Active Substance: CILGAVIMAB\TIXAGEVIMAB
  14. GABAPENTIN [Concomitant]
     Active Substance: GABAPENTIN
  15. CLOBETASOL PROPIONATE [Concomitant]
     Active Substance: CLOBETASOL PROPIONATE
  16. COLACE [Concomitant]
     Active Substance: DOCUSATE SODIUM
  17. VITAMIN B6 [Concomitant]
     Active Substance: PYRIDOXINE HYDROCHLORIDE
  18. PRAVASTATIN [Concomitant]
     Active Substance: PRAVASTATIN
  19. AMOXICILLIN [Concomitant]
     Active Substance: AMOXICILLIN
  20. SULFAMETHOXAZOLE\TRIMETHOPRIM [Concomitant]
     Active Substance: SULFAMETHOXAZOLE\TRIMETHOPRIM
  21. ZINC GLUCONATE [Concomitant]
     Active Substance: ZINC GLUCONATE
  22. RITUXAN [Concomitant]
     Active Substance: RITUXIMAB
  23. MODERNA COVID-19 VACCINE [Concomitant]
     Active Substance: ELASOMERAN
  24. BACTRIM [Concomitant]
     Active Substance: SULFAMETHOXAZOLE\TRIMETHOPRIM
  25. IRON [Concomitant]
     Active Substance: IRON
  26. WELLBUTRIN XL [Concomitant]
     Active Substance: BUPROPION HYDROCHLORIDE
  27. FUROSEMIDE [Concomitant]
     Active Substance: FUROSEMIDE
  28. NIACINAMIDE [Concomitant]
     Active Substance: NIACINAMIDE
  29. TRAZODONE [Concomitant]
     Active Substance: TRAZODONE HYDROCHLORIDE
  30. CALCIUM [Concomitant]
     Active Substance: CALCIUM

REACTIONS (2)
  - Death [Fatal]
  - Hip fracture [Recovering/Resolving]

NARRATIVE: CASE EVENT DATE: 20240605
